FAERS Safety Report 10177028 (Version 1)
Quarter: 2014Q2

REPORT INFORMATION
  Report Type: Report from Study
  Country: CA (occurrence: CA)
  Receive Date: 20140516
  Receipt Date: 20140516
  Transmission Date: 20141212
  Serious: Yes (Other)
  Sender: FDA-Public Use
  Company Number: CA-BRISTOL-MYERS SQUIBB COMPANY-20751137

PATIENT
  Age: 55 Year
  Sex: Female

DRUGS (10)
  1. ORENCIA [Suspect]
     Indication: RHEUMATOID ARTHRITIS
     Dosage: 1DF = 750 UNITS NOS.?LAST INFUSION: 08MAY2014
     Dates: start: 20111128
  2. NAPROXEN [Concomitant]
  3. ATASOL [Concomitant]
  4. NEXIUM [Concomitant]
  5. DOMPERIDONE [Concomitant]
  6. CALCIUM [Concomitant]
  7. CITALOPRAM [Concomitant]
  8. PLAQUENIL [Concomitant]
  9. METHOTREXATE [Concomitant]
  10. LEUCOVORIN [Concomitant]

REACTIONS (3)
  - Cataract [Unknown]
  - Road traffic accident [Unknown]
  - Headache [Unknown]
